FAERS Safety Report 10205246 (Version 1)
Quarter: 2014Q2

REPORT INFORMATION
  Report Type: Report from Study
  Country: US (occurrence: US)
  Receive Date: 20140529
  Receipt Date: 20140529
  Transmission Date: 20141212
  Serious: Yes (Hospitalization)
  Sender: FDA-Public Use
  Company Number: US-JNJFOC-20140513865

PATIENT
  Sex: Female
  Weight: 68.04 kg

DRUGS (8)
  1. REMICADE [Suspect]
     Indication: DIVERTICULITIS
     Route: 042
     Dates: start: 2013
  2. LEVAQUIN [Suspect]
     Indication: MASTITIS
     Route: 065
  3. FLAGYL [Suspect]
     Indication: MASTITIS
     Route: 065
     Dates: start: 2014, end: 2014
  4. PINOSOL [Concomitant]
     Route: 054
  5. PREDNISONE [Concomitant]
     Route: 065
  6. HYDROCODONE [Concomitant]
     Indication: PAIN
     Route: 065
  7. ZOFRAN [Concomitant]
     Indication: VOMITING
     Route: 065
  8. PHENERGAN [Concomitant]
     Indication: VOMITING
     Route: 065

REACTIONS (3)
  - Mastitis [Not Recovered/Not Resolved]
  - Drug effect decreased [Not Recovered/Not Resolved]
  - Off label use [Not Recovered/Not Resolved]
